FAERS Safety Report 5950637-3 (Version None)
Quarter: 2008Q4

REPORT INFORMATION
  Report Type: 
  Country: None (occurrence: None)
  Receive Date: 20081112
  Receipt Date: 20081103
  Transmission Date: 20090506
  Serious: Yes (Hospitalization)
  Sender: FDA-Public Use
  Company Number: US-AVENTIS-200817535US

PATIENT
  Age: 55 Year
  Sex: Male
  Weight: 88.6 kg

DRUGS (3)
  1. KETEK [Suspect]
     Dosage: DOSE: UNK
     Dates: start: 20041101
  2. ATORVASTATIN CALCIUM [Suspect]
     Dates: start: 20040401, end: 20041115
  3. ATORVASTATIN CALCIUM [Suspect]
     Dates: start: 20030401, end: 20040401

REACTIONS (6)
  - ABNORMAL SENSATION IN EYE [None]
  - ASTHENIA [None]
  - FATIGUE [None]
  - HEADACHE [None]
  - HEPATIC ENZYME INCREASED [None]
  - HEPATITIS [None]
